FAERS Safety Report 5288291-9 (Version None)
Quarter: 2007Q2

REPORT INFORMATION
  Report Type: 
  Country: None (occurrence: None)
  Receive Date: 20070405
  Receipt Date: 20070326
  Transmission Date: 20071010
  Serious: Yes (Death)
  Sender: FDA-Public Use
  Company Number: RO-ROCHE-489700

PATIENT
  Age: 58 Year
  Sex: Male
  Weight: 32 kg

DRUGS (2)
  1. PEGASYS [Suspect]
     Route: 058
     Dates: start: 20060415, end: 20070215
  2. COPEGUS [Suspect]
     Route: 048
     Dates: start: 20060415, end: 20070215

REACTIONS (2)
  - CARDIO-RESPIRATORY ARREST [None]
  - EMBOLISM [None]
